FAERS Safety Report 23264389 (Version 1)
Quarter: 2023Q4

REPORT INFORMATION
  Report Type: Other
  Country: US (occurrence: US)
  Receive Date: 20231205
  Receipt Date: 20231205
  Transmission Date: 20240109
  Serious: Yes (Other)
  Sender: FDA-Public Use
  Company Number: US-HLS-202301615

PATIENT
  Age: 39 Year
  Sex: Female

DRUGS (3)
  1. CLOZAPINE [Suspect]
     Active Substance: CLOZAPINE
     Indication: Product used for unknown indication
     Route: 065
  2. LITHIUM [Concomitant]
     Active Substance: LITHIUM
     Indication: Product used for unknown indication
     Dosage: 900 MG/DAY, LEVELS 0.6 TO 0.8 MEQ/L
     Route: 065
  3. Paliperidone palmitate 1056mg [Concomitant]
     Indication: Product used for unknown indication
     Dosage: ADMINISTERED EVERY 6 MONTHS
     Route: 030

REACTIONS (2)
  - Toxicity to various agents [Unknown]
  - COVID-19 [Unknown]

NARRATIVE: CASE EVENT DATE: 20220613
